FAERS Safety Report 6265010-0 (Version None)
Quarter: 2009Q3

REPORT INFORMATION
  Report Type: 
  Country: None (occurrence: None)
  Receive Date: 20090713
  Receipt Date: 20090704
  Transmission Date: 20100115
  Serious: Yes (Other)
  Sender: FDA-Public Use
  Company Number: BR-JNJFOC-20090702482

PATIENT
  Age: 45 Year
  Sex: Female
  Weight: 76 kg

DRUGS (5)
  1. TYLEX [Suspect]
     Indication: SPINAL OPERATION
     Route: 065
  2. BROMAZEPAM [Concomitant]
  3. ATENOLOL [Concomitant]
  4. UROTRIL (PHENAZOPYRIDINE HYDROCHLORIDE) [Concomitant]
     Indication: URINARY TRACT DISORDER
  5. ENALAPRIL MALEATE [Concomitant]
     Indication: HYPERTENSION

REACTIONS (8)
  - ABDOMINAL PAIN UPPER [None]
  - ANXIETY [None]
  - DIZZINESS [None]
  - DYSGEUSIA [None]
  - EMOTIONAL DISTRESS [None]
  - SEDATION [None]
  - SOMNOLENCE [None]
  - VISION BLURRED [None]
